FAERS Safety Report 9354284 (Version 1)
Quarter: 2013Q2

REPORT INFORMATION
  Report Type: Spontaneous
  Country: US (occurrence: US)
  Receive Date: 20130618
  Receipt Date: 20130618
  Transmission Date: 20140414
  Serious: Yes (Death)
  Sender: FDA-Public Use
  Company Number: US-COVIDIEN/TYCO HEALTHCARE/MALLINCKRODT-T201203233

PATIENT
  Age: 65 Year
  Sex: Female

DRUGS (6)
  1. ULTRATAG RBC [Suspect]
     Indication: MULTIPLE GATED ACQUISITION SCAN
     Dosage: UNK
     Dates: start: 2011, end: 2011
  2. ULTRA-TECHNEKOW DTE GENERATOR [Concomitant]
     Dosage: UNK
     Dates: start: 2011, end: 2011
  3. XELODA [Concomitant]
  4. TYKERB [Concomitant]
  5. GEMZAR [Concomitant]
  6. HERCEPTIN [Concomitant]

REACTIONS (1)
  - Drug ineffective [Unknown]
